FAERS Safety Report 9220387 (Version 1)
Quarter: 2013Q2

REPORT INFORMATION
  Report Type: Spontaneous
  Country: US (occurrence: US)
  Receive Date: 20130409
  Receipt Date: 20130409
  Transmission Date: 20140414
  Serious: Yes (Other)
  Sender: FDA-Public Use
  Company Number: US-PFIZER INC-2013109553

PATIENT
  Sex: Female

DRUGS (1)
  1. TIKOSYN [Suspect]
     Dosage: UNK

REACTIONS (6)
  - Myocardial infarction [Unknown]
  - Cardiac disorder [Unknown]
  - Drug ineffective [Not Recovered/Not Resolved]
  - Nephrolithiasis [Unknown]
  - Constipation [Unknown]
  - Irritable bowel syndrome [Unknown]
